FAERS Safety Report 13579847 (Version 1)
Quarter: 2017Q2

REPORT INFORMATION
  Report Type: Spontaneous
  Country: US (occurrence: US)
  Receive Date: 20170524
  Receipt Date: 20170524
  Transmission Date: 20170830
  Serious: No
  Sender: FDA-Public Use
  Company Number: None

PATIENT
  Age: 44 Year
  Sex: Male

DRUGS (1)
  1. ENBREL [Suspect]
     Active Substance: ETANERCEPT
     Dosage: 50MG EVERY WEEK SQ
     Route: 058
     Dates: start: 20160809

REACTIONS (1)
  - Amnesia [None]

NARRATIVE: CASE EVENT DATE: 20170101
